FAERS Safety Report 5080456-4 (Version None)
Quarter: 2006Q3

REPORT INFORMATION
  Report Type: 
  Country: None (occurrence: None)
  Receive Date: 20060815
  Receipt Date: 20060803
  Transmission Date: 20061208
  Serious: Yes (Death)
  Sender: FDA-Public Use
  Company Number: US-BRISTOL-MYERS SQUIBB COMPANY-13464573

PATIENT
  Age: 43 Year
  Sex: Male
  Weight: 59 kg

DRUGS (10)
  1. ABILIFY [Suspect]
     Indication: PERSONALITY DISORDER
     Route: 048
     Dates: start: 20041001, end: 20051101
  2. METHADONE HCL [Concomitant]
  3. XANAX [Concomitant]
  4. CARAFATE [Concomitant]
  5. CREON [Concomitant]
  6. LOPRESSOR [Concomitant]
  7. LANTUS [Concomitant]
  8. HUMALOG [Concomitant]
  9. TOPROL-XL [Concomitant]
  10. PROTONIX [Concomitant]
     Dates: start: 20041001

REACTIONS (2)
  - ASPIRATION [None]
  - CHOKING [None]
